FAERS Safety Report 5411081-0 (Version None)
Quarter: 2007Q3

REPORT INFORMATION
  Report Type: 
  Country: None (occurrence: None)
  Receive Date: 20070713
  Receipt Date: 20070417
  Transmission Date: 20080115
  Serious: No
  Sender: FDA-Public Use
  Company Number: 2007SP001404

PATIENT
  Age: 50 Year
  Sex: Female
  Weight: 85.2762 kg

DRUGS (3)
  1. LUNESTA [Suspect]
     Indication: INSOMNIA
     Dosage: 3 MG; 1X; ORAL
     Route: 048
     Dates: start: 20070406, end: 20070406
  2. SEROQUE [Concomitant]
  3. WELLBUTRIN [Concomitant]

REACTIONS (2)
  - DYSGEUSIA [None]
  - INSOMNIA [None]
